FAERS Safety Report 6696572-7 (Version None)
Quarter: 2010Q2

REPORT INFORMATION
  Report Type: 
  Country: None (occurrence: None)
  Receive Date: 20100422
  Receipt Date: 20100413
  Transmission Date: 20101027
  Serious: Yes (Hospitalization)
  Sender: FDA-Public Use
  Company Number: 2010AL002171

PATIENT
  Age: 64 Year
  Sex: Female

DRUGS (1)
  1. IBUPROFEN [Suspect]
     Dosage: 400 MG; PO
     Route: 048

REACTIONS (5)
  - ACUTE GENERALISED EXANTHEMATOUS PUSTULOSIS [None]
  - PAPILLOEDEMA [None]
  - SCAR [None]
  - SKIN DEPIGMENTATION [None]
  - SUBCORNEAL PUSTULAR DERMATOSIS [None]
